FAERS Safety Report 22197501 (Version 2)
Quarter: 2024Q4

REPORT INFORMATION
  Report Type: Spontaneous
  Country: US (occurrence: US)
  Receive Date: 20230411
  Receipt Date: 20241016
  Transmission Date: 20250114
  Serious: No
  Sender: SANOFI AVENTIS
  Company Number: US-SA-SAC20230411000428

PATIENT
  Age: 40 Year
  Sex: Male

DRUGS (7)
  1. DUPIXENT [Suspect]
     Active Substance: DUPILUMAB
     Indication: Asthma
     Dosage: 300 MG, QOW
     Route: 058
     Dates: start: 20230113
  2. ALBUTEROL SULFATE [Concomitant]
     Active Substance: ALBUTEROL SULFATE
  3. BUDESONIDE [Concomitant]
     Active Substance: BUDESONIDE
  4. METHIMAZOLE [Concomitant]
     Active Substance: METHIMAZOLE
  5. MONTELUKAST [Concomitant]
     Active Substance: MONTELUKAST
  6. PREDNISONE [Concomitant]
     Active Substance: PREDNISONE
  7. SINUVA [Concomitant]
     Active Substance: MOMETASONE FUROATE

REACTIONS (3)
  - Headache [Unknown]
  - Drug ineffective [Unknown]
  - Impaired quality of life [Not Recovered/Not Resolved]

NARRATIVE: CASE EVENT DATE: 20230101
